FAERS Safety Report 17705052 (Version 1)
Quarter: 2020Q2

REPORT INFORMATION
  Report Type: Spontaneous
  Country: US (occurrence: US)
  Receive Date: 20200424
  Receipt Date: 20200424
  Transmission Date: 20200714
  Serious: No
  Sender: FDA-Public Use
  Company Number: US-PFIZER INC-2020161914

PATIENT
  Age: 42 Year
  Sex: Female

DRUGS (1)
  1. EUCRISA [Suspect]
     Active Substance: CRISABOROLE
     Dosage: UNK, 2X/DAY [APPLY TO AFFECTED AREA(S) TWICE A DAY]

REACTIONS (5)
  - Pain [Unknown]
  - Pruritus [Unknown]
  - Burning sensation [Unknown]
  - Drug ineffective [Unknown]
  - Condition aggravated [Unknown]
